FAERS Safety Report 18114864 (Version 1)
Quarter: 2020Q3

REPORT INFORMATION
  Report Type: Spontaneous
  Country: GB (occurrence: GB)
  Receive Date: 20200805
  Receipt Date: 20200805
  Transmission Date: 20201103
  Serious: Yes (Death, Hospitalization, Other)
  Sender: FDA-Public Use
  Company Number: GB-PFIZER INC-2020295709

PATIENT
  Age: 74 Year
  Sex: Male

DRUGS (1)
  1. IBRANCE [Suspect]
     Active Substance: PALBOCICLIB
     Indication: METASTASIS
     Dosage: UNK

REACTIONS (5)
  - Neoplasm progression [Fatal]
  - COVID-19 [Fatal]
  - Lymphangitis [Unknown]
  - Dyspnoea [Unknown]
  - Pneumonitis [Unknown]
